FAERS Safety Report 20609851 (Version 3)
Quarter: 2022Q2

REPORT INFORMATION
  Report Type: Spontaneous
  Country: AU (occurrence: AU)
  Receive Date: 20220318
  Receipt Date: 20220427
  Transmission Date: 20220721
  Serious: No
  Sender: FDA-Public Use
  Company Number: AU-JNJFOC-20220308474

PATIENT
  Sex: Female

DRUGS (12)
  1. FENTANYL [Suspect]
     Active Substance: FENTANYL
     Indication: Pain
     Dosage: STRENGTH- 50.00 MCG/HR
     Route: 062
  2. FENTANYL [Suspect]
     Active Substance: FENTANYL
  3. FENTANYL [Suspect]
     Active Substance: FENTANYL
  4. FENTANYL [Suspect]
     Active Substance: FENTANYL
  5. FENTANYL [Suspect]
     Active Substance: FENTANYL
  6. FENTANYL [Suspect]
     Active Substance: FENTANYL
  7. FENTANYL [Suspect]
     Active Substance: FENTANYL
     Indication: Pain
     Dosage: STRENGTH 50.00 MCG/HR
     Route: 062
  8. FENTANYL [Suspect]
     Active Substance: FENTANYL
  9. FENTANYL [Suspect]
     Active Substance: FENTANYL
  10. FENTANYL [Suspect]
     Active Substance: FENTANYL
  11. FENTANYL [Suspect]
     Active Substance: FENTANYL
  12. FENTANYL [Suspect]
     Active Substance: FENTANYL

REACTIONS (5)
  - Depression [Unknown]
  - Anxiety [Unknown]
  - Withdrawal syndrome [Unknown]
  - Product complaint [Unknown]
  - Product adhesion issue [Unknown]
